FAERS Safety Report 4950441-9 (Version None)
Quarter: 2006Q1

REPORT INFORMATION
  Report Type: 
  Country: None (occurrence: None)
  Receive Date: 20060322
  Receipt Date: 20060216
  Transmission Date: 20060701
  Serious: Yes (Other)
  Sender: FDA-Public Use
  Company Number: PHBS2006AT02784

PATIENT
  Age: 64 Year
  Sex: Male

DRUGS (1)
  1. GLEEVEC [Suspect]
     Indication: CHRONIC MYELOID LEUKAEMIA
     Dosage: 400 MG/D
     Route: 065
     Dates: start: 20060101

REACTIONS (7)
  - CHEILITIS [None]
  - DRY SKIN [None]
  - PARAPSORIASIS [None]
  - PHOTOSENSITIVITY REACTION [None]
  - PRURITUS [None]
  - RASH [None]
  - SKIN EXFOLIATION [None]
